FAERS Safety Report 4945374-8 (Version None)
Quarter: 2006Q1

REPORT INFORMATION
  Report Type: 
  Country: None (occurrence: None)
  Receive Date: 20060315
  Receipt Date: 20060315
  Transmission Date: 20060701
  Serious: Yes (Hospitalization)
  Sender: FDA-Public Use
  Company Number: None

PATIENT
  Age: 40 Year
  Sex: Female
  Weight: 62.5964 kg

DRUGS (8)
  1. CARBAMAZEPINE [Suspect]
     Indication: HEADACHE
     Dosage: UNKNOWN DOSE (~8TS)
  2. CARBAMAZEPINE [Suspect]
     Indication: PAIN
     Dosage: UNKNOWN DOSE (~8TS)
  3. CLONAZEPAM [Concomitant]
  4. MIRTAZAPINE [Concomitant]
  5. PA [Concomitant]
  6. THIAMINE [Concomitant]
  7. M.V.I. [Concomitant]
  8. OMEPRAZOLE [Concomitant]

REACTIONS (6)
  - ALCOHOL USE [None]
  - GAIT DISTURBANCE [None]
  - HEADACHE [None]
  - MENTAL STATUS CHANGES [None]
  - PAIN [None]
  - SPEECH DISORDER [None]
